FAERS Safety Report 13089027 (Version 1)
Quarter: 2017Q1

REPORT INFORMATION
  Report Type: Spontaneous
  Country: US (occurrence: US)
  Receive Date: 20170104
  Receipt Date: 20170104
  Transmission Date: 20170428
  Serious: No
  Sender: FDA-Public Use
  Company Number: None

PATIENT
  Age: 77 Year
  Sex: Male

DRUGS (1)
  1. PRALUENT [Suspect]
     Active Substance: ALIROCUMAB
     Indication: ARTERIOSCLEROSIS
     Dosage: OTHER FREQUENCY:EVERY 2 WEEKS; SUBCUTANEOUS; 75 MG?
     Route: 058
     Dates: start: 20160715, end: 20161115

REACTIONS (4)
  - Arthralgia [None]
  - Peripheral swelling [None]
  - Pain in extremity [None]
  - Dysstasia [None]

NARRATIVE: CASE EVENT DATE: 20161115
